FAERS Safety Report 5218884-6 (Version None)
Quarter: 2007Q1

REPORT INFORMATION
  Report Type: 
  Country: None (occurrence: None)
  Receive Date: 20070125
  Receipt Date: 20070117
  Transmission Date: 20070707
  Serious: Yes (Hospitalization)
  Sender: FDA-Public Use
  Company Number: DE-JNJFOC-20070100939

PATIENT
  Age: 78 Year
  Sex: Male

DRUGS (10)
  1. LEVOFLOXACIN [Suspect]
     Indication: PROPHYLAXIS
     Route: 048
     Dates: start: 20051107, end: 20051113
  2. DOCETAXEL [Concomitant]
     Indication: NON-SMALL CELL LUNG CANCER
     Route: 042
  3. CARBOPLATIN [Concomitant]
     Indication: NON-SMALL CELL LUNG CANCER
     Route: 065
  4. DELIX [Concomitant]
     Indication: HYPERTENSION
     Route: 048
  5. PANTOZOL [Concomitant]
     Route: 048
  6. NOVAMIN [Concomitant]
     Indication: ANALGESIC EFFECT
     Dosage: 120 DROPS
     Route: 048
  7. METOCLOPRAMIDE [Concomitant]
     Dosage: 90 DROPS
     Route: 048
  8. LACTULOSE [Concomitant]
     Dosage: 2 TBSP
     Route: 048
  9. BUSCOPAN [Concomitant]
     Indication: MUSCLE SPASMS
     Dosage: 6 U
     Route: 048
  10. CLEXANE [Concomitant]
     Route: 058

REACTIONS (1)
  - RENAL COLIC [None]
